FAERS Safety Report 6198032-9 (Version None)
Quarter: 2009Q2

REPORT INFORMATION
  Report Type: 
  Country: None (occurrence: None)
  Receive Date: 20090521
  Receipt Date: 20090520
  Transmission Date: 20091009
  Serious: Yes (Hospitalization, Other)
  Sender: FDA-Public Use
  Company Number: US-RB-009862-09

PATIENT
  Sex: Male

DRUGS (2)
  1. SUBOXONE [Suspect]
     Route: 060
     Dates: end: 20090209
  2. SUBOXONE [Suspect]
     Route: 060
     Dates: start: 20081104

REACTIONS (1)
  - HALLUCINATION [None]
